FAERS Safety Report 16702208 (Version 1)
Quarter: 2019Q3

REPORT INFORMATION
  Report Type: Spontaneous
  Country: US (occurrence: US)
  Receive Date: 20190627
  Receipt Date: 20190627
  Transmission Date: 20191004
  Serious: No
  Sender: FDA-Public Use
  Company Number: None

PATIENT
  Sex: Female

DRUGS (1)
  1. TENOFOVIR DISOPROXIL FUMARATE 300MG AUROBINDO PHARMA [Suspect]
     Active Substance: TENOFOVIR DISOPROXIL FUMARATE
     Indication: HEPATITIS VIRAL
     Route: 048
     Dates: start: 201905

REACTIONS (3)
  - Insomnia [None]
  - Weight increased [None]
  - Peripheral swelling [None]
